FAERS Safety Report 15899567 (Version 1)
Quarter: 2019Q1

REPORT INFORMATION
  Report Type: Spontaneous
  Country: GB (occurrence: GB)
  Receive Date: 20190201
  Receipt Date: 20190201
  Transmission Date: 20190417
  Serious: Yes (Other)
  Sender: FDA-Public Use
  Company Number: GB-PERRIGO-19GB001355

PATIENT
  Age: 34 Year
  Sex: Female
  Weight: 64.41 kg

DRUGS (1)
  1. MAX STRENGTH COLD AND FLU CAPSULES 12063/0066 [Suspect]
     Active Substance: ACETAMINOPHEN\CAFFEINE\PHENYLEPHRINE HYDROCHLORIDE
     Indication: SINUS CONGESTION
     Dosage: 2 CAPSULES EVERY 4-6 HOURS
     Route: 048
     Dates: start: 20190119, end: 20190119

REACTIONS (2)
  - Diarrhoea [Not Recovered/Not Resolved]
  - Feeling hot [Not Recovered/Not Resolved]

NARRATIVE: CASE EVENT DATE: 20190119
